FAERS Safety Report 9383130 (Version 2)
Quarter: 2013Q3

REPORT INFORMATION
  Report Type: Spontaneous
  Country: CA (occurrence: CA)
  Receive Date: 20130704
  Receipt Date: 20130718
  Transmission Date: 20140515
  Serious: Yes (Hospitalization)
  Sender: FDA-Public Use
  Company Number: CA-AMGEN-CANSP2013046112

PATIENT
  Age: 34 Year
  Sex: Male

DRUGS (4)
  1. ENBREL [Suspect]
     Indication: PSORIASIS
     Dosage: 50 MG, 2 TIMES/WK
     Route: 058
     Dates: start: 20110504
  2. COVERSYL                           /00790702/ [Concomitant]
     Dosage: UNK
  3. WELLBUTRIN [Concomitant]
     Dosage: UNK
  4. ATENOLOL [Concomitant]
     Dosage: UNK

REACTIONS (5)
  - Fistula [Recovered/Resolved]
  - Condition aggravated [Recovered/Resolved]
  - Skin disorder [Recovered/Resolved]
  - Anal abscess [Recovered/Resolved]
  - Psoriasis [Unknown]
